FAERS Safety Report 8383250 (Version 3)
Quarter: 2013Q1

REPORT INFORMATION
  Report Type: Report from Study
  Country: JP (occurrence: JP)
  Receive Date: 20120130
  Receipt Date: 20130305
  Transmission Date: 20140127
  Serious: Yes (Hospitalization, Other)
  Sender: FDA-Public Use
  Company Number: PHHY2010JP24029

PATIENT
  Age: 81 Year
  Sex: Female

DRUGS (9)
  1. AMN107 [Suspect]
     Indication: CHRONIC MYELOID LEUKAEMIA
     Dosage: 800 MG, DAILY
     Route: 048
     Dates: start: 20091228, end: 20100315
  2. AMN107 [Suspect]
     Dosage: 400 MG, DAILY
     Route: 048
     Dates: start: 20100316
  3. METHYCOBAL [Concomitant]
     Indication: RENAL IMPAIRMENT
     Dosage: 150 UG, UNK
     Route: 048
  4. BIOFERMIN [Concomitant]
     Indication: RENAL IMPAIRMENT
     Dosage: 3 G, UNK
     Route: 048
  5. THYRADIN [Concomitant]
     Indication: RENAL IMPAIRMENT
     Dosage: 50 UG, UNK
     Route: 048
  6. ALFAROL [Concomitant]
     Indication: PROPHYLAXIS
     Dosage: 1 UG, UNK
     Route: 048
     Dates: start: 20091228
  7. TAKEPRON [Concomitant]
     Indication: PROPHYLAXIS
     Dosage: 15 MG
     Dates: start: 20091228
  8. ALENDRONATE SODIUM [Concomitant]
     Indication: PROPHYLAXIS
     Dosage: 35 MG
     Route: 048
     Dates: start: 20091228
  9. PREDONINE [Concomitant]
     Indication: CHRONIC MYELOID LEUKAEMIA
     Dosage: 30 MG, UNK
     Route: 048
     Dates: start: 200605

REACTIONS (6)
  - Fluid retention [Recovered/Resolved]
  - Pleural effusion [Unknown]
  - Anaemia [Not Recovered/Not Resolved]
  - Cardiac failure [Unknown]
  - Hyperglycaemia [Not Recovered/Not Resolved]
  - Blood potassium increased [Recovering/Resolving]
